FAERS Safety Report 5000634-X (Version None)
Quarter: 2006Q2

REPORT INFORMATION
  Report Type: 
  Country: None (occurrence: None)
  Receive Date: 20060512
  Receipt Date: 20060503
  Transmission Date: 20061013
  Serious: Yes (Hospitalization)
  Sender: FDA-Public Use
  Company Number: GB-AVENTIS-200612583EU

PATIENT
  Age: 72 Year
  Sex: Female

DRUGS (3)
  1. CLEXANE [Suspect]
     Indication: THROMBOSIS PROPHYLAXIS
  2. IBUPROFEN [Suspect]
     Indication: KNEE ARTHROPLASTY
  3. MORPHINE [Concomitant]
     Indication: POSTOPERATIVE ANALGESIA

REACTIONS (2)
  - GASTRIC ULCER [None]
  - UPPER GASTROINTESTINAL HAEMORRHAGE [None]
